FAERS Safety Report 20512306 (Version 9)
Quarter: 2022Q3

REPORT INFORMATION
  Report Type: Spontaneous
  Country: JP (occurrence: JP)
  Receive Date: 20220224
  Receipt Date: 20220914
  Transmission Date: 20221027
  Serious: Yes (Hospitalization, Other)
  Sender: FDA-Public Use
  Company Number: JP-MSD-M2022-03867

PATIENT
  Age: 8 Decade
  Sex: Female

DRUGS (11)
  1. KEYTRUDA [Suspect]
     Active Substance: PEMBROLIZUMAB
     Indication: Endometrial cancer stage IV
     Dosage: 200 MILLIGRAM, Q3W
     Route: 041
     Dates: start: 20220125, end: 2022
  2. LENVIMA [Suspect]
     Active Substance: LENVATINIB
     Indication: Endometrial cancer stage IV
     Dosage: 20 MILLIGRAM, QD
     Route: 048
     Dates: start: 20220125, end: 20220209
  3. LENVIMA [Suspect]
     Active Substance: LENVATINIB
     Dosage: UNK
     Route: 048
     Dates: start: 20220219, end: 20220219
  4. LENVIMA [Suspect]
     Active Substance: LENVATINIB
     Dosage: UNK
     Route: 048
     Dates: start: 20220302, end: 20220302
  5. LENVIMA [Suspect]
     Active Substance: LENVATINIB
     Dosage: UNK
     Route: 048
     Dates: start: 20220309, end: 202203
  6. LENVIMA [Suspect]
     Active Substance: LENVATINIB
     Dosage: UNK
     Route: 048
     Dates: start: 202203, end: 20220418
  7. LENVIMA [Suspect]
     Active Substance: LENVATINIB
     Dosage: 10 MILLIGRAM
     Route: 048
     Dates: start: 20220419, end: 20220611
  8. LENVIMA [Suspect]
     Active Substance: LENVATINIB
     Dosage: 10 MILLIGRAM
     Route: 048
     Dates: start: 20220617, end: 202207
  9. LENVIMA [Suspect]
     Active Substance: LENVATINIB
     Dosage: 8 MILLIGRAM
     Route: 048
     Dates: start: 202207, end: 202207
  10. LENVIMA [Suspect]
     Active Substance: LENVATINIB
     Dosage: UNK
     Route: 048
     Dates: start: 202207, end: 2022
  11. LENVIMA [Suspect]
     Active Substance: LENVATINIB
     Dosage: 8 MILLIGRAM
     Route: 048
     Dates: start: 2022, end: 20220901

REACTIONS (19)
  - Hypothyroidism [Recovered/Resolved]
  - Hypothyroidism [Recovered/Resolved]
  - Diarrhoea [Recovered/Resolved]
  - Dehydration [Recovered/Resolved]
  - Hypertension [Recovered/Resolved]
  - Syncope [Recovered/Resolved]
  - Arrhythmia [Recovered/Resolved]
  - Vitreous floaters [Recovered/Resolved]
  - Pollakiuria [Recovered/Resolved]
  - Hypertension [Recovering/Resolving]
  - Platelet count decreased [Recovered/Resolved]
  - Pyrexia [Recovered/Resolved]
  - Fatigue [Recovered/Resolved]
  - Pyrexia [Recovered/Resolved]
  - Malaise [Recovered/Resolved]
  - Pyrexia [Recovered/Resolved]
  - Fatigue [Recovered/Resolved]
  - Malaise [Recovered/Resolved]
  - Proteinuria [Recovered/Resolved]

NARRATIVE: CASE EVENT DATE: 20220125
